FAERS Safety Report 24428903 (Version 5)
Quarter: 2024Q4

REPORT INFORMATION
  Report Type: Report from Study
  Country: KR (occurrence: KR)
  Receive Date: 20241011
  Receipt Date: 20241107
  Transmission Date: 20250115
  Serious: Yes (Hospitalization)
  Sender: PFIZER
  Company Number: KR-PFIZER INC-PV202400130635

PATIENT
  Age: 32 Year
  Sex: Female
  Weight: 95 kg

DRUGS (10)
  1. CIBINQO [Suspect]
     Active Substance: ABROCITINIB
     Indication: Dermatitis atopic
     Dosage: 200 MG, QD
     Route: 048
     Dates: start: 20240819, end: 20241006
  2. METHYLON [METHYLPREDNISOLONE ACETATE] [Concomitant]
     Indication: Dermatitis atopic
     Dosage: 4 MG
     Route: 048
     Dates: start: 20240908, end: 20240922
  3. EVOPRIM [Concomitant]
     Indication: Dermatitis atopic
     Dosage: SC
     Route: 048
     Dates: start: 20240422, end: 20241006
  4. TWOLION [Concomitant]
     Indication: Dermatitis atopic
     Dosage: UNK
     Route: 048
     Dates: start: 20240422
  5. RUPAFIN [Concomitant]
     Active Substance: RUPATADINE FUMARATE
     Indication: Dermatitis atopic
     Dosage: UNK
     Route: 048
     Dates: start: 20240422
  6. TOPISOL [CLOBETASOL] [Concomitant]
     Indication: Dermatitis atopic
     Dosage: MILK LOTION 80 G
     Route: 061
     Dates: start: 20240422
  7. PROTOPIC [Concomitant]
     Active Substance: TACROLIMUS
     Indication: Dermatitis atopic
     Dosage: 0.03 %
     Route: 061
     Dates: start: 20240422
  8. PROTOPIC [Concomitant]
     Active Substance: TACROLIMUS
     Dosage: 0.1 %
     Route: 061
     Dates: start: 20240422
  9. RAMNOS [Concomitant]
     Indication: Prophylaxis
     Dosage: 500 MG
     Route: 048
     Dates: start: 20240422
  10. AUGMENTIN [Concomitant]
     Active Substance: AMOXICILLIN\CLAVULANATE POTASSIUM
     Indication: Dermatitis atopic
     Dosage: 375 MG
     Route: 048
     Dates: start: 20240909

REACTIONS (1)
  - Eczema herpeticum [Recovered/Resolved]

NARRATIVE: CASE EVENT DATE: 20241005
